FAERS Safety Report 8764926 (Version 2)
Quarter: 2012Q4

REPORT INFORMATION
  Report Type: 
  Country: AR (occurrence: AR)
  Receive Date: 20120902
  Receipt Date: 20120912
  Transmission Date: 20130627
  Serious: Yes (Other)
  Sender: FDA-Public Use
  Company Number: AR-AMGEN-ARGSP2012054632

PATIENT
  Age: 61 Year
  Sex: Female

DRUGS (6)
  1. ENBREL [Suspect]
     Indication: RHEUMATOID ARTHRITIS
     Dosage: 50 mg, weekly
     Route: 065
     Dates: start: 20080422, end: 201207
  2. ENBREL [Suspect]
     Dosage: 50 mg, qwk
     Dates: start: 20120818
  3. METHOTREXATE [Concomitant]
     Dosage: UNK
  4. NAPROXEN [Concomitant]
     Dosage: UNK
  5. ENALAPRIL [Concomitant]
     Dosage: UNK
  6. CORBIS [Concomitant]
     Dosage: UNK

REACTIONS (1)
  - Aneurysm [Recovered/Resolved]
